FAERS Safety Report 4372057-8 (Version None)
Quarter: 2004Q2

REPORT INFORMATION
  Report Type: 
  Country: None (occurrence: None)
  Receive Date: 20040602
  Receipt Date: 20040518
  Transmission Date: 20050107
  Serious: No
  Sender: FDA-Public Use
  Company Number: 2004-BP-00827NB

PATIENT
  Age: 77 Year
  Sex: Female

DRUGS (5)
  1. MICARDIS [Suspect]
     Indication: HYPERTENSION
     Dosage: 40 MG
     Route: 048
     Dates: start: 20040124, end: 20040124
  2. NORVASC [Concomitant]
  3. URSO (URSO URSODEOXYCHOLIC ACID) [Concomitant]
  4. BISOPROLOL FUMARATE [Concomitant]
  5. DEPAS (ETIZOLAM) [Concomitant]

REACTIONS (1)
  - RHABDOMYOLYSIS [None]
